FAERS Safety Report 25104388 (Version 1)
Quarter: 2025Q1

REPORT INFORMATION
  Report Type: Spontaneous
  Country: US (occurrence: None)
  Receive Date: 20250320
  Receipt Date: 20250320
  Transmission Date: 20250409
  Serious: No
  Sender: FDA-CTU
  Company Number: None

PATIENT
  Sex: Female

DRUGS (6)
  1. FOLLISTIM AQ [Suspect]
     Active Substance: FOLLITROPIN
     Indication: Infertility
     Dosage: OTHER QUANTITY : 75-450 UNITS;?FREQUENCY : DAILY;?
     Route: 058
     Dates: start: 202503
  2. MENOPUR [Suspect]
     Active Substance: FOLLITROPIN\LUTEINIZING HORMONE
     Indication: Infertility
     Dosage: OTHER QUANTITY : 75-450 UNITS;?FREQUENCY : DAILY;?
     Route: 058
     Dates: start: 202503
  3. GANIRELIX ACETATE [Concomitant]
     Active Substance: GANIRELIX ACETATE
  4. PREGVYL [Concomitant]
  5. LEUPROLIDE ACET [Concomitant]
  6. OVIDREL [Concomitant]
     Active Substance: CHORIOGONADOTROPIN ALFA

REACTIONS (1)
  - Blood viscosity abnormal [None]
